FAERS Safety Report 4984930-8 (Version None)
Quarter: 2006Q1

REPORT INFORMATION
  Report Type: 
  Country: None (occurrence: None)
  Receive Date: 20060308
  Receipt Date: 20060224
  Transmission Date: 20060701
  Serious: Yes (Other)
  Sender: FDA-Public Use
  Company Number: 25225

PATIENT
  Age: 65 Year
  Sex: Male

DRUGS (1)
  1. ACETAZOLAMIDE [Suspect]

REACTIONS (2)
  - ANAPHYLACTIC REACTION [None]
  - RASH [None]
